FAERS Safety Report 11653804 (Version 2)
Quarter: 2015Q4

REPORT INFORMATION
  Report Type: Spontaneous
  Country: US (occurrence: None)
  Receive Date: 20151022
  Receipt Date: 20151028
  Transmission Date: 20160304
  Serious: Yes (Hospitalization, Other)
  Sender: FDA-Public Use
  Company Number: US-MDT-ADR-2015-02002

PATIENT
  Age: 29 Year
  Sex: Female

DRUGS (2)
  1. LIORESAL [Suspect]
     Active Substance: BACLOFEN
     Indication: MUSCLE SPASTICITY
     Dosage: 750 MCG/DAY; FLEX DOSE
  2. ORAL BACLOFEN [Suspect]
     Active Substance: BACLOFEN
     Indication: MUSCLE SPASTICITY

REACTIONS (7)
  - Agitation [None]
  - Drug withdrawal syndrome [None]
  - Muscle spasms [None]
  - Heart rate increased [None]
  - Mental status changes [None]
  - Muscle spasticity [None]
  - Pruritus [None]
